FAERS Safety Report 9266007 (Version 1)
Quarter: 2013Q2

REPORT INFORMATION
  Report Type: Spontaneous
  Country: US (occurrence: US)
  Receive Date: 20130501
  Receipt Date: 20130501
  Transmission Date: 20140414
  Serious: No
  Sender: FDA-Public Use
  Company Number: US-009507513-1304USA017672

PATIENT
  Sex: Female
  Weight: 104.76 kg

DRUGS (3)
  1. JANUVIA [Suspect]
     Indication: TYPE 2 DIABETES MELLITUS
     Dosage: 100 MG, 1 PILL A DAY
     Route: 048
     Dates: start: 201204, end: 20130427
  2. TOPROL XL TABLETS [Concomitant]
  3. MIRAPEX [Concomitant]

REACTIONS (5)
  - Alopecia [Unknown]
  - Local swelling [Unknown]
  - Erythema [Unknown]
  - Joint swelling [Unknown]
  - Swollen tongue [Unknown]
